FAERS Safety Report 25136026 (Version 1)
Quarter: 2025Q1

REPORT INFORMATION
  Report Type: Spontaneous
  Country: BR (occurrence: BR)
  Receive Date: 20250328
  Receipt Date: 20250328
  Transmission Date: 20250409
  Serious: Yes (Death, Other)
  Sender: AMGEN
  Company Number: BR-AMGEN-BRASP2025058184

PATIENT

DRUGS (2)
  1. BLINATUMOMAB [Suspect]
     Active Substance: BLINATUMOMAB
     Indication: B-cell type acute leukaemia
     Route: 065
  2. Immunoglobulin [Concomitant]

REACTIONS (15)
  - B-cell type acute leukaemia [Fatal]
  - Death [Fatal]
  - Acute graft versus host disease [Unknown]
  - Chronic graft versus host disease [Unknown]
  - Cytomegalovirus infection reactivation [Unknown]
  - Acute lymphocytic leukaemia recurrent [Unknown]
  - Transplant dysfunction [Unknown]
  - Transplant failure [Unknown]
  - Seizure [Unknown]
  - BK virus infection [Unknown]
  - Haematotoxicity [Unknown]
  - COVID-19 [Unknown]
  - Therapy non-responder [Unknown]
  - Herpes virus infection [Unknown]
  - Pyrexia [Unknown]
